FAERS Safety Report 6872379-2 (Version None)
Quarter: 2010Q3

REPORT INFORMATION
  Report Type: 
  Country: None (occurrence: None)
  Receive Date: 20100723
  Receipt Date: 20081030
  Transmission Date: 20110219
  Serious: Yes (Other)
  Sender: FDA-Public Use
  Company Number: US-PFIZER INC-2008080379

PATIENT
  Sex: Male
  Weight: 94.6 kg

DRUGS (5)
  1. CHANTIX [Suspect]
     Indication: SMOKING CESSATION THERAPY
     Dates: start: 20080701
  2. RITALIN [Concomitant]
  3. PERCOCET [Concomitant]
  4. BENADRYL [Concomitant]
  5. CLARITIN [Concomitant]

REACTIONS (2)
  - MUSCLE SPASMS [None]
  - PLATELET COUNT DECREASED [None]
